FAERS Safety Report 24547064 (Version 1)
Quarter: 2024Q4

REPORT INFORMATION
  Report Type: Spontaneous
  Country: CN (occurrence: CN)
  Receive Date: 20241025
  Receipt Date: 20241025
  Transmission Date: 20250115
  Serious: Yes (Other)
  Sender: ABBVIE
  Company Number: CN-ABBVIE-5973569

PATIENT
  Age: 27 Year
  Sex: Female
  Weight: 46 kg

DRUGS (1)
  1. VENETOCLAX [Suspect]
     Active Substance: VENETOCLAX
     Indication: Neoplasm prophylaxis
     Dosage: 400 MILLIGRAM
     Route: 048
     Dates: start: 20240908, end: 20241005

REACTIONS (2)
  - Myelosuppression [Recovering/Resolving]
  - Platelet count decreased [Unknown]

NARRATIVE: CASE EVENT DATE: 20240101
